FAERS Safety Report 5352764-0 (Version None)
Quarter: 2007Q2

REPORT INFORMATION
  Report Type: 
  Country: None (occurrence: None)
  Receive Date: 20070611
  Receipt Date: 20070529
  Transmission Date: 20071010
  Serious: Yes (Hospitalization, Other)
  Sender: FDA-Public Use
  Company Number: US-ELI_LILLY_AND_COMPANY-US200705007069

PATIENT
  Age: 64 Year
  Sex: Female

DRUGS (3)
  1. CYMBALTA [Suspect]
     Indication: PANIC DISORDER
     Dosage: 90 MG, UNK
     Route: 048
     Dates: start: 20060501
  2. XANAX [Concomitant]
     Dosage: 4.5 MG, UNK
  3. COLAZAL [Concomitant]

REACTIONS (10)
  - ANOREXIA [None]
  - COLITIS [None]
  - CONFUSIONAL STATE [None]
  - CRYING [None]
  - DEHYDRATION [None]
  - DEPRESSION [None]
  - DRUG INEFFECTIVE [None]
  - HEPATIC ENZYME INCREASED [None]
  - NAUSEA [None]
  - PANIC DISORDER WITH AGORAPHOBIA [None]
